FAERS Safety Report 7936820-6 (Version None)
Quarter: 2011Q4

REPORT INFORMATION
  Report Type: 
  Country: None (occurrence: None)
  Receive Date: 20111123
  Receipt Date: 20111115
  Transmission Date: 20120403
  Serious: No
  Sender: FDA-Public Use
  Company Number: US-B.I. PHARMACEUTICALS,INC./RIDGEFIELD-2011-BP-26255BP

PATIENT
  Age: 78 Year
  Sex: Male

DRUGS (6)
  1. ZYTIGA [Concomitant]
     Indication: PROSTATE CANCER
     Route: 048
     Dates: start: 20111001
  2. DIGOXIN [Concomitant]
     Dosage: 0.25 MG
     Route: 048
  3. PRADAXA [Concomitant]
     Indication: ATRIAL FIBRILLATION
     Dosage: 300 MG
     Route: 048
     Dates: start: 20101101
  4. SPIRIVA [Suspect]
     Indication: BRONCHITIS CHRONIC
     Dosage: 18 MCG
     Route: 055
     Dates: start: 20110815
  5. DILTIAZEM HCL [Concomitant]
     Dosage: 120 MG
     Route: 048
  6. PREDNISONE TAB [Concomitant]
     Indication: PROSTATE CANCER
     Dosage: 10 MG
     Route: 048

REACTIONS (1)
  - BLOOD GLUCOSE INCREASED [None]
